FAERS Safety Report 8776395 (Version 3)
Quarter: 2012Q4

REPORT INFORMATION
  Report Type: 
  Country: PT (occurrence: PT)
  Receive Date: 20120910
  Receipt Date: 20120920
  Transmission Date: 20130627
  Serious: Yes (Death, Hospitalization)
  Sender: FDA-Public Use
  Company Number: PT-BAXTER-2012BAX016043

PATIENT
  Age: 2 Year
  Sex: Female

DRUGS (6)
  1. EXTRANEAL [Suspect]
     Indication: AUTOMATED PERITONEAL DIALYSIS
     Route: 033
     Dates: start: 20110416, end: 20120830
  2. DEXTROSE\SODIUM BICARBONATE\SODIUM CHLORIDE\SODIUM LACTATE [Suspect]
     Indication: AUTOMATED PERITONEAL DIALYSIS
     Route: 033
     Dates: start: 20110416, end: 20120830
  3. PHYSIONEAL 35 GLUCOSE 1,36% P/V/ 13,6 MG/ML [Concomitant]
     Indication: AUTOMATED PERITONEAL DIALYSIS
     Route: 033
     Dates: start: 20110416, end: 20120830
  4. CALCIUM CARBONATE [Concomitant]
     Indication: DRUG USE FOR UNKNOWN INDICATION
     Route: 048
  5. ESOMEPRAZOLE [Concomitant]
     Indication: DRUG USE FOR UNKNOWN INDICATION
     Route: 048
  6. FOLIC ACID [Concomitant]
     Indication: DRUG USE FOR UNKNOWN INDICATION
     Route: 048

REACTIONS (6)
  - Malaise [Unknown]
  - Fatigue [Unknown]
  - Moaning [Unknown]
  - Hypertensive crisis [Unknown]
  - Hypertensive encephalopathy [Fatal]
  - Coma [Fatal]
